FAERS Safety Report 8816665 (Version 1)
Quarter: 2012Q4

REPORT INFORMATION
  Report Type: Spontaneous
  Country: US (occurrence: None)
  Receive Date: 20120928
  Receipt Date: 20120928
  Transmission Date: 20130627
  Serious: Yes (Other)
  Sender: FDA-Public Use
  Company Number: 1433240

PATIENT
  Age: 59 Year
  Sex: Male

DRUGS (5)
  1. VINCRISTINE SULFATE [Suspect]
     Indication: T-CELL LYMPHOMA STAGE III
  2. CYCLOPHOSPHAMIDE [Suspect]
  3. BEVACIZUMAB [Suspect]
  4. DOXORUBICIN [Suspect]
  5. PREDNISONE [Suspect]

REACTIONS (2)
  - Left ventricular dysfunction [None]
  - Cardiotoxicity [None]
